FAERS Safety Report 5125722-9 (Version None)
Quarter: 2006Q4

REPORT INFORMATION
  Report Type: 
  Country: None (occurrence: None)
  Receive Date: 20061012
  Receipt Date: 20061002
  Transmission Date: 20070319
  Serious: Yes (Other)
  Sender: FDA-Public Use
  Company Number: US-JNJFOC-20061000818

PATIENT
  Age: 32 Year
  Sex: Female

DRUGS (1)
  1. ULTRAM SR [Suspect]
     Indication: ARTHRITIS
     Route: 048

REACTIONS (1)
  - ASTHMA [None]
